FAERS Safety Report 20180235 (Version 1)
Quarter: 2021Q4

REPORT INFORMATION
  Report Type: Spontaneous
  Country: US (occurrence: None)
  Receive Date: 20211213
  Receipt Date: 20211213
  Transmission Date: 20220303
  Serious: Yes (Other)
  Sender: FDA-Public Use
  Company Number: None

PATIENT
  Age: 58 Year
  Sex: Female
  Weight: 159 kg

DRUGS (12)
  1. REMDESIVIR [Suspect]
     Active Substance: REMDESIVIR
     Indication: COVID-19
     Dosage: FREQUENCY : DAILY;?
     Route: 042
     Dates: start: 20211209, end: 20211212
  2. ASPIRIN [Concomitant]
     Active Substance: ASPIRIN
     Dates: start: 20211209
  3. CYANOCOBALAMIN [Concomitant]
     Active Substance: CYANOCOBALAMIN
     Dates: start: 20211209
  4. dexamethasone 6 mg [Concomitant]
     Dates: start: 20211209
  5. enoxaparin 60 mg Q12 hrs [Concomitant]
     Dates: start: 20211209
  6. insulin aspart 6 units TID [Concomitant]
     Dates: start: 20211209
  7. insulin glargine 18 units daily [Concomitant]
     Dates: start: 20211210
  8. lisinopril 20 mg QD [Concomitant]
     Dates: start: 20211209
  9. magnesium 4 gm x1 [Concomitant]
     Dates: start: 202112, end: 20211212
  10. melatonin 3 mg x1 [Concomitant]
     Dates: start: 20211209, end: 20211209
  11. 0.9% sodium chloride 1L bolus [Concomitant]
     Dates: start: 20211209, end: 20211209
  12. acetaminophen 650 mg x1 [Concomitant]
     Dates: start: 20211209, end: 20211209

REACTIONS (2)
  - Bradycardia [None]
  - Therapy cessation [None]

NARRATIVE: CASE EVENT DATE: 20211211
